FAERS Safety Report 6566893-7 (Version None)
Quarter: 2010Q1

REPORT INFORMATION
  Report Type: 
  Country: None (occurrence: None)
  Receive Date: 20100128
  Receipt Date: 20100114
  Transmission Date: 20100710
  Serious: Yes (Hospitalization)
  Sender: FDA-Public Use
  Company Number: A-US2010-33267

PATIENT
  Age: 70 Year
  Sex: Male

DRUGS (1)
  1. TRACLEER [Suspect]
     Indication: PULMONARY ARTERIAL HYPERTENSION
     Dosage: ORAL
     Route: 048
     Dates: start: 20091120

REACTIONS (3)
  - OFF LABEL USE [None]
  - SCROTAL INFECTION [None]
  - URINARY TRACT INFECTION [None]
